FAERS Safety Report 5901001-4 (Version None)
Quarter: 2008Q3

REPORT INFORMATION
  Report Type: 
  Country: None (occurrence: None)
  Receive Date: 20080924
  Receipt Date: 20070917
  Transmission Date: 20090109
  Serious: Yes (Hospitalization)
  Sender: FDA-Public Use
  Company Number: 2007-00882FE

PATIENT
  Age: 13 Year
  Sex: Female

DRUGS (1)
  1. MINIRIN [Suspect]
     Indication: ENURESIS
     Dosage: 0.6 MG PO
     Route: 048

REACTIONS (3)
  - AGITATION [None]
  - HALLUCINATIONS, MIXED [None]
  - PSYCHOTIC DISORDER [None]
